FAERS Safety Report 6876567-0 (Version None)
Quarter: 2010Q3

REPORT INFORMATION
  Report Type: 
  Country: None (occurrence: None)
  Receive Date: 20100727
  Receipt Date: 20100721
  Transmission Date: 20110219
  Serious: Yes (Hospitalization)
  Sender: FDA-Public Use
  Company Number: DE-CEPHALON-2010003842

PATIENT
  Age: 59 Year
  Sex: Female
  Weight: 71 kg

DRUGS (3)
  1. EFFENTORA [Suspect]
     Indication: BREAKTHROUGH PAIN
     Route: 002
     Dates: start: 20100616
  2. TRAMADOL HYDROCHLORIDE [Concomitant]
     Indication: CANCER PAIN
  3. NOVAMINSULFON [Concomitant]
     Indication: CANCER PAIN

REACTIONS (2)
  - DRUG PRESCRIBING ERROR [None]
  - HOSPITALISATION [None]
